FAERS Safety Report 25154721 (Version 1)
Quarter: 2025Q2

REPORT INFORMATION
  Report Type: Spontaneous
  Country: IT (occurrence: IT)
  Receive Date: 20250403
  Receipt Date: 20250403
  Transmission Date: 20250717
  Serious: Yes (Other)
  Sender: MYLAN
  Company Number: IT-MYLANLABS-2025M1027276

PATIENT
  Age: 35 Year
  Sex: Female

DRUGS (24)
  1. AMLODIPINE [Suspect]
     Active Substance: AMLODIPINE BESYLATE
     Indication: Blood pressure abnormal
  2. AMLODIPINE [Suspect]
     Active Substance: AMLODIPINE BESYLATE
     Route: 065
  3. AMLODIPINE [Suspect]
     Active Substance: AMLODIPINE BESYLATE
     Route: 065
  4. AMLODIPINE [Suspect]
     Active Substance: AMLODIPINE BESYLATE
  5. NEBIVOLOL [Suspect]
     Active Substance: NEBIVOLOL
     Indication: Blood pressure abnormal
  6. NEBIVOLOL [Suspect]
     Active Substance: NEBIVOLOL
     Route: 065
  7. NEBIVOLOL [Suspect]
     Active Substance: NEBIVOLOL
     Route: 065
  8. NEBIVOLOL [Suspect]
     Active Substance: NEBIVOLOL
  9. EPLERENONE [Suspect]
     Active Substance: EPLERENONE
     Indication: Blood pressure abnormal
  10. EPLERENONE [Suspect]
     Active Substance: EPLERENONE
     Route: 065
  11. EPLERENONE [Suspect]
     Active Substance: EPLERENONE
     Route: 065
  12. EPLERENONE [Suspect]
     Active Substance: EPLERENONE
  13. CLONIDINE [Suspect]
     Active Substance: CLONIDINE
     Indication: Blood pressure abnormal
  14. CLONIDINE [Suspect]
     Active Substance: CLONIDINE
     Route: 065
  15. CLONIDINE [Suspect]
     Active Substance: CLONIDINE
     Route: 065
  16. CLONIDINE [Suspect]
     Active Substance: CLONIDINE
  17. URAPIDIL [Suspect]
     Active Substance: URAPIDIL
     Indication: Blood pressure abnormal
  18. URAPIDIL [Suspect]
     Active Substance: URAPIDIL
     Route: 065
  19. URAPIDIL [Suspect]
     Active Substance: URAPIDIL
     Route: 065
  20. URAPIDIL [Suspect]
     Active Substance: URAPIDIL
  21. FUROSEMIDE [Suspect]
     Active Substance: FUROSEMIDE
     Indication: Blood pressure abnormal
  22. FUROSEMIDE [Suspect]
     Active Substance: FUROSEMIDE
     Route: 065
  23. FUROSEMIDE [Suspect]
     Active Substance: FUROSEMIDE
     Route: 065
  24. FUROSEMIDE [Suspect]
     Active Substance: FUROSEMIDE

REACTIONS (1)
  - Drug ineffective [Unknown]
